FAERS Safety Report 5661099-8 (Version None)
Quarter: 2008Q1

REPORT INFORMATION
  Report Type: 
  Country: None (occurrence: None)
  Receive Date: 20080305
  Receipt Date: 20080221
  Transmission Date: 20080703
  Serious: Yes (Hospitalization)
  Sender: FDA-Public Use
  Company Number: 2008004535

PATIENT
  Age: 19 Year
  Sex: Female

DRUGS (2)
  1. BENADRYL [Suspect]
     Indication: SUICIDE ATTEMPT
     Dosage: A  BOTTLE, ORAL
     Route: 048
     Dates: start: 20050701, end: 20050701
  2. ACETAMINOPHEN [Concomitant]

REACTIONS (2)
  - INTENTIONAL DRUG MISUSE [None]
  - SUICIDE ATTEMPT [None]
